FAERS Safety Report 21707162 (Version 1)
Quarter: 2022Q4

REPORT INFORMATION
  Report Type: Report from Study
  Country: PR (occurrence: PR)
  Receive Date: 20221209
  Receipt Date: 20221209
  Transmission Date: 20230113
  Serious: No
  Sender: FDA-Public Use
  Company Number: PR-ABBVIE-22K-131-4486633-00

PATIENT
  Age: 64 Year
  Sex: Female

DRUGS (1)
  1. SKYRIZI [Suspect]
     Active Substance: RISANKIZUMAB-RZAA
     Indication: Psoriasis
     Route: 058
     Dates: start: 20210910

REACTIONS (4)
  - Blister [Not Recovered/Not Resolved]
  - Intentional product misuse [Unknown]
  - Rash [Unknown]
  - Skin plaque [Unknown]

NARRATIVE: CASE EVENT DATE: 20220201
